FAERS Safety Report 5506854-X (Version None)
Quarter: 2007Q4

REPORT INFORMATION
  Report Type: 
  Country: None (occurrence: None)
  Receive Date: 20071105
  Receipt Date: 20071026
  Transmission Date: 20080405
  Serious: Yes (Hospitalization)
  Sender: FDA-Public Use
  Company Number: AU-SANOFI-SYNTHELABO-A01200712165

PATIENT
  Age: 50 Year
  Sex: Male

DRUGS (2)
  1. LUVOX [Concomitant]
     Indication: DEPRESSION
     Dosage: 100 MG
     Route: 048
  2. STILNOX [Suspect]
     Indication: DEPRESSION
     Dosage: UNK
     Route: 048

REACTIONS (3)
  - AMNESIA [None]
  - CONFUSIONAL STATE [None]
  - DELIRIUM [None]
